FAERS Safety Report 6649747-7 (Version None)
Quarter: 2010Q1

REPORT INFORMATION
  Report Type: 
  Country: None (occurrence: None)
  Receive Date: 20100324
  Receipt Date: 20100324
  Transmission Date: 20100710
  Serious: No
  Sender: FDA-Public Use
  Company Number: None

PATIENT
  Age: 62 Year
  Sex: Male
  Weight: 68.0396 kg

DRUGS (1)
  1. METOPROLOL SUCCINATE EXTENDED RELEASE [Suspect]
     Indication: HYPERTENSION
     Dosage: 50 MG TABELT ONE A DAY
     Dates: start: 20080915, end: 20090630

REACTIONS (5)
  - CHEST PAIN [None]
  - DYSPNOEA [None]
  - EXERCISE TOLERANCE DECREASED [None]
  - HYPOAESTHESIA [None]
  - PARAESTHESIA [None]
